FAERS Safety Report 6631357-9 (Version None)
Quarter: 2010Q1

REPORT INFORMATION
  Report Type: 
  Country: None (occurrence: None)
  Receive Date: 20100311
  Receipt Date: 20100311
  Transmission Date: 20100710
  Serious: Yes (Life-Threatening)
  Sender: FDA-Public Use
  Company Number: None

PATIENT
  Age: 91 Year
  Sex: Male
  Weight: 45.2 kg

DRUGS (1)
  1. LINEZOLID [Suspect]
     Indication: ENDOCARDITIS
     Dosage: 600 MG BID IV
     Route: 042
     Dates: start: 20100204, end: 20100219

REACTIONS (1)
  - THROMBOCYTOPENIA [None]
